FAERS Safety Report 16925686 (Version 1)
Quarter: 2019Q4

REPORT INFORMATION
  Report Type: Spontaneous
  Country: US (occurrence: US)
  Receive Date: 20191016
  Receipt Date: 20191016
  Transmission Date: 20200122
  Serious: Yes (Hospitalization, Disabling)
  Sender: FDA-Public Use
  Company Number: None

PATIENT
  Age: 62 Year
  Sex: Male
  Weight: 80.55 kg

DRUGS (3)
  1. CIPROFLOXACIN. [Suspect]
     Active Substance: CIPROFLOXACIN
     Indication: URINARY TRACT INFECTION
     Dosage: ?          QUANTITY:1 TABLET(S);?
     Route: 048
     Dates: start: 20190830, end: 20190831
  2. LORATADINE. [Concomitant]
     Active Substance: LORATADINE
  3. ALPRAZOLAM. [Concomitant]
     Active Substance: ALPRAZOLAM

REACTIONS (7)
  - Ear discomfort [None]
  - Vision blurred [None]
  - Tinnitus [None]
  - Dizziness [None]
  - Burning sensation [None]
  - Balance disorder [None]
  - Paraesthesia [None]

NARRATIVE: CASE EVENT DATE: 20190830
